FAERS Safety Report 14283954 (Version 4)
Quarter: 2018Q3

REPORT INFORMATION
  Report Type: Spontaneous
  Country: IT (occurrence: IT)
  Receive Date: 20171214
  Receipt Date: 20180726
  Transmission Date: 20181010
  Serious: Yes (Other)
  Sender: FDA-Public Use
  Company Number: IT-ACCORD-062159

PATIENT
  Age: 54 Year
  Sex: Male
  Weight: 129 kg

DRUGS (6)
  1. LIRAGLUTID [Suspect]
     Active Substance: LIRAGLUTIDE
     Indication: PRODUCT USED FOR UNKNOWN INDICATION
  2. METFORMIN [Concomitant]
     Active Substance: METFORMIN HYDROCHLORIDE
     Indication: TYPE 2 DIABETES MELLITUS
  3. SITAGLIPTIN/SITAGLIPTIN PHOSPHATE [Suspect]
     Active Substance: SITAGLIPTIN PHOSPHATE
     Indication: PRODUCT USED FOR UNKNOWN INDICATION
     Route: 048
  4. GLIMEPIRIDE. [Suspect]
     Active Substance: GLIMEPIRIDE
     Indication: TYPE 2 DIABETES MELLITUS
     Dosage: 6 MG/DAY; ALSO RECEIVEN AT THE DOSE OF 2 MG.
  5. INSULIN [Suspect]
     Active Substance: INSULIN NOS
     Indication: TYPE 2 DIABETES MELLITUS
  6. METFORMIN [Suspect]
     Active Substance: METFORMIN HYDROCHLORIDE
     Indication: TYPE 2 DIABETES MELLITUS
     Dosage: ALSO RECEIVED 3 G, 9G /DAY

REACTIONS (5)
  - Condition aggravated [Recovered/Resolved]
  - Weight increased [Recovered/Resolved]
  - Drug ineffective [Recovered/Resolved]
  - Hyperglycaemia [Recovered/Resolved]
  - Diabetes mellitus inadequate control [Recovered/Resolved]

NARRATIVE: CASE EVENT DATE: 20140201
